FAERS Safety Report 5032867-0 (Version None)
Quarter: 2006Q2

REPORT INFORMATION
  Report Type: 
  Country: None (occurrence: None)
  Receive Date: 20060622
  Receipt Date: 20060614
  Transmission Date: 20061013
  Serious: Yes (Hospitalization)
  Sender: FDA-Public Use
  Company Number: FR-GLAXOSMITHKLINE-B0427816A

PATIENT
  Age: 41 Year
  Sex: Female

DRUGS (6)
  1. KIVEXA [Suspect]
     Indication: HIV INFECTION
     Dosage: 1TAB PER DAY
     Route: 048
     Dates: start: 20050712, end: 20050825
  2. EPIVIR [Suspect]
     Indication: HIV INFECTION
     Route: 065
     Dates: start: 20050728, end: 20050818
  3. NORVIR [Concomitant]
     Indication: HIV INFECTION
     Dosage: 1UNIT PER DAY
     Route: 048
     Dates: start: 20050712
  4. REYATAZ [Concomitant]
     Indication: HIV INFECTION
     Dosage: 2UNIT PER DAY
     Route: 048
     Dates: start: 20050712
  5. VIREAD [Concomitant]
     Indication: HIV INFECTION
     Route: 065
     Dates: start: 20050728, end: 20050818
  6. SUSTIVA [Concomitant]
     Indication: HIV INFECTION
     Route: 065
     Dates: start: 20050818

REACTIONS (7)
  - ABDOMINAL PAIN [None]
  - ALANINE AMINOTRANSFERASE INCREASED [None]
  - ASPARTATE AMINOTRANSFERASE INCREASED [None]
  - ASTHENIA [None]
  - BLOOD ALKALINE PHOSPHATASE INCREASED [None]
  - BLOOD LACTIC ACID INCREASED [None]
  - DIARRHOEA [None]
